FAERS Safety Report 5215789-1 (Version None)
Quarter: 2007Q1

REPORT INFORMATION
  Report Type: 
  Country: None (occurrence: None)
  Receive Date: 20070123
  Receipt Date: 20070110
  Transmission Date: 20070707
  Serious: Yes (Hospitalization, Congenital Anomaly, Other)
  Sender: FDA-Public Use
  Company Number: JAGER34690

PATIENT
  Sex: Male
  Weight: 1.01 kg

DRUGS (5)
  1. HALDOL [Suspect]
  2. HALDOL [Suspect]
     Indication: DRUG EXPOSURE DURING PREGNANCY
  3. AMPICILLIN [Suspect]
     Indication: DRUG EXPOSURE DURING PREGNANCY
  4. DIAZEPAM [Suspect]
     Indication: DRUG EXPOSURE DURING PREGNANCY
  5. BALDRIAN [Suspect]
     Indication: DRUG EXPOSURE DURING PREGNANCY
     Route: 015

REACTIONS (7)
  - ARRHYTHMIA NEONATAL [None]
  - BACTERIAL SEPSIS [None]
  - DRUG EXPOSURE DURING PREGNANCY [None]
  - FOETAL GROWTH RETARDATION [None]
  - PREMATURE BABY [None]
  - SEPSIS NEONATAL [None]
  - SMALL FOR DATES BABY [None]
